FAERS Safety Report 5531500-9 (Version None)
Quarter: 2007Q4

REPORT INFORMATION
  Report Type: 
  Country: None (occurrence: None)
  Receive Date: 20071128
  Receipt Date: 20071128
  Transmission Date: 20080405
  Serious: Yes (Other)
  Sender: FDA-Public Use
  Company Number: None

PATIENT
  Age: 51 Year
  Sex: Female
  Weight: 75.7507 kg

DRUGS (1)
  1. CHANTIX [Suspect]
     Indication: SMOKING CESSATION THERAPY
     Dates: start: 20070813, end: 20071015

REACTIONS (7)
  - ANAPHYLACTIC SHOCK [None]
  - ANGER [None]
  - DEPRESSION [None]
  - IMPULSE-CONTROL DISORDER [None]
  - INSOMNIA [None]
  - POISONING [None]
  - SUICIDAL IDEATION [None]
